FAERS Safety Report 20756427 (Version 1)
Quarter: 2022Q2

REPORT INFORMATION
  Report Type: Spontaneous
  Country: US (occurrence: None)
  Receive Date: 20220427
  Receipt Date: 20220427
  Transmission Date: 20220721
  Serious: No
  Sender: FDA-Public Use
  Company Number: 2022A158350

PATIENT
  Age: 850 Month
  Sex: Female
  Weight: 68 kg

DRUGS (1)
  1. BUDESONIDE\FORMOTEROL\GLYCOPYRRONIUM [Suspect]
     Active Substance: BUDESONIDE\FORMOTEROL\GLYCOPYRRONIUM
     Indication: Chronic obstructive pulmonary disease
     Dosage: 160/9/4.8 MCG TWO INHALATIONS, TWICE DAILY
     Route: 055

REACTIONS (10)
  - Insomnia [Unknown]
  - Dyspnoea [Unknown]
  - Oral infection [Recovered/Resolved]
  - Stomatitis [Recovered/Resolved]
  - Speech disorder [Recovered/Resolved]
  - Feeding disorder [Recovered/Resolved]
  - Body height decreased [Not Recovered/Not Resolved]
  - Device use issue [Unknown]
  - Device delivery system issue [Unknown]
  - Wrong technique in device usage process [Unknown]

NARRATIVE: CASE EVENT DATE: 20211101
